FAERS Safety Report 7033994-9 (Version None)
Quarter: 2010Q4

REPORT INFORMATION
  Report Type: 
  Country: None (occurrence: None)
  Receive Date: 20101006
  Receipt Date: 20100920
  Transmission Date: 20110411
  Serious: Yes (Life-Threatening, Hospitalization)
  Sender: FDA-Public Use
  Company Number: IN-ACCORD-006303

PATIENT
  Age: 48 Year
  Sex: Female

DRUGS (2)
  1. PACLITAXEL [Suspect]
     Indication: METASTASIS
     Dosage: 240.00-MG- INTRAVENOUS
     Route: 042
  2. CISPLATIN [Concomitant]

REACTIONS (9)
  - CARDIAC ARREST [None]
  - CARDIOTOXICITY [None]
  - CIRCULATORY COLLAPSE [None]
  - LOSS OF CONSCIOUSNESS [None]
  - MYOCARDIAL INFARCTION [None]
  - MYOCARDIAL ISCHAEMIA [None]
  - PALPITATIONS [None]
  - PULSE ABSENT [None]
  - SINUS TACHYCARDIA [None]
